FAERS Safety Report 7159038-6 (Version None)
Quarter: 2010Q4

REPORT INFORMATION
  Report Type: 
  Country: None (occurrence: None)
  Receive Date: 20101214
  Receipt Date: 20101203
  Transmission Date: 20110411
  Serious: Yes (Hospitalization)
  Sender: FDA-Public Use
  Company Number: US-CELGENEUS-163-21880-10120682

PATIENT
  Sex: Male

DRUGS (3)
  1. REVLIMID [Suspect]
     Route: 048
     Dates: start: 20081101
  2. REVLIMID [Suspect]
     Dosage: 15-25MG
     Route: 048
     Dates: start: 20090501
  3. REVLIMID [Suspect]
     Route: 048
     Dates: start: 20100301

REACTIONS (5)
  - COAGULOPATHY [None]
  - DEEP VEIN THROMBOSIS [None]
  - INFECTION [None]
  - MUSCULOSKELETAL DISORDER [None]
  - PSORIASIS [None]
